FAERS Safety Report 9242097 (Version 2)
Quarter: 2013Q2

REPORT INFORMATION
  Report Type: Spontaneous
  Country: ES (occurrence: ES)
  Receive Date: 20130419
  Receipt Date: 20130426
  Transmission Date: 20140414
  Serious: No
  Sender: FDA-Public Use
  Company Number: ES-BAYER-2013-049003

PATIENT
  Age: 43 Year
  Sex: Male

DRUGS (2)
  1. ACTIRA [Suspect]
     Indication: NASOPHARYNGITIS
     Dosage: UNK
     Dates: start: 20130302, end: 20130306
  2. ACTIRA [Suspect]
     Indication: NASOPHARYNGITIS
     Dosage: UNK
     Dates: start: 20130401

REACTIONS (1)
  - Pre-existing condition improved [None]
